FAERS Safety Report 18928760 (Version 1)
Quarter: 2021Q1

REPORT INFORMATION
  Report Type: Spontaneous
  Country: PT (occurrence: PT)
  Receive Date: 20210223
  Receipt Date: 20210223
  Transmission Date: 20210420
  Serious: Yes (Other)
  Sender: FDA-Public Use
  Company Number: NVSC2021PT034626

PATIENT
  Age: 54 Year
  Sex: Female

DRUGS (3)
  1. RIBOCICLIB. [Suspect]
     Active Substance: RIBOCICLIB
     Indication: BREAST CANCER METASTATIC
     Dosage: 400 MG, QD
     Route: 065
  2. RIBOCICLIB. [Suspect]
     Active Substance: RIBOCICLIB
     Indication: INVASIVE DUCTAL BREAST CARCINOMA
     Dosage: 600 MG (21 DAYS/BREAK 7 DAYS)
     Route: 065
  3. LETROZOLE. [Concomitant]
     Active Substance: LETROZOLE
     Indication: PRODUCT USED FOR UNKNOWN INDICATION
     Dosage: 2.5 MG (CONTINOUS)
     Route: 065

REACTIONS (11)
  - Lung opacity [Not Recovered/Not Resolved]
  - Pulmonary fibrosis [Not Recovered/Not Resolved]
  - Neutropenia [Unknown]
  - Vaginal haemorrhage [Unknown]
  - Hepatic steatosis [Unknown]
  - Pleural thickening [Not Recovered/Not Resolved]
  - Emphysema [Not Recovered/Not Resolved]
  - Asthenia [Unknown]
  - Fat necrosis [Unknown]
  - Metastases to pleura [Unknown]
  - Arthralgia [Unknown]

NARRATIVE: CASE EVENT DATE: 201804
